FAERS Safety Report 9494960 (Version 1)
Quarter: 2013Q3

REPORT INFORMATION
  Report Type: Spontaneous
  Country: US (occurrence: None)
  Receive Date: 20130830
  Receipt Date: 20130830
  Transmission Date: 20140515
  Serious: No
  Sender: FDA-Public Use
  Company Number: None

PATIENT
  Age: 56 Year
  Sex: Female
  Weight: 59.42 kg

DRUGS (1)
  1. OXYCODONE [Suspect]
     Indication: MALIGNANT MELANOMA
     Route: 048
     Dates: start: 20130517, end: 20130618

REACTIONS (3)
  - Product quality issue [None]
  - Incorrect dose administered [None]
  - Drug effect decreased [None]
